FAERS Safety Report 16538336 (Version 1)
Quarter: 2019Q3

REPORT INFORMATION
  Report Type: Spontaneous
  Country: US (occurrence: US)
  Receive Date: 20190708
  Receipt Date: 20190708
  Transmission Date: 20191004
  Serious: No
  Sender: FDA-Public Use
  Company Number: US-TEVA-2019-US-1070427

PATIENT
  Age: 4 Year
  Sex: Male

DRUGS (8)
  1. TAZAROTENE. [Suspect]
     Active Substance: TAZAROTENE
     Indication: EPIDERMAL NAEVUS
     Route: 061
  2. BETAMETHASONE VALERATE. [Suspect]
     Active Substance: BETAMETHASONE VALERATE
     Indication: EPIDERMAL NAEVUS
     Route: 061
  3. TACROLIMUS. [Suspect]
     Active Substance: TACROLIMUS
     Indication: EPIDERMAL NAEVUS
     Route: 061
  4. TRIAMCINOLONE [Suspect]
     Active Substance: TRIAMCINOLONE
     Indication: EPIDERMAL NAEVUS
     Route: 061
  5. DESONIDE. [Suspect]
     Active Substance: DESONIDE
     Indication: EPIDERMAL NAEVUS
     Route: 061
  6. CLOBETASOL [Suspect]
     Active Substance: CLOBETASOL
     Indication: EPIDERMAL NAEVUS
     Route: 061
  7. AMMONIUM LACTATE. [Suspect]
     Active Substance: AMMONIUM LACTATE
     Indication: EPIDERMAL NAEVUS
     Route: 061
  8. CALCIPOTRIENE. [Suspect]
     Active Substance: CALCIPOTRIENE
     Indication: EPIDERMAL NAEVUS
     Dosage: 0.005%
     Route: 061

REACTIONS (1)
  - Drug ineffective [Unknown]
